FAERS Safety Report 5939746-2 (Version None)
Quarter: 2008Q4

REPORT INFORMATION
  Report Type: 
  Country: None (occurrence: None)
  Receive Date: 20081030
  Receipt Date: 20081030
  Transmission Date: 20090506
  Serious: No
  Sender: FDA-Public Use
  Company Number: None

PATIENT
  Age: 71 Year
  Sex: Female
  Weight: 81.6475 kg

DRUGS (1)
  1. TRAMADOL HYDROCHLORIDE AND ACETAMINOPHEN [Suspect]
     Indication: NEURALGIA
     Dosage: 1 TAB EVERY 6 HR MOUTH
     Route: 048
     Dates: start: 20081001, end: 20081003

REACTIONS (5)
  - INSOMNIA [None]
  - MUSCULOSKELETAL STIFFNESS [None]
  - PAIN [None]
  - PARADOXICAL DRUG REACTION [None]
  - TREATMENT FAILURE [None]
